FAERS Safety Report 5020503-9 (Version None)
Quarter: 2006Q2

REPORT INFORMATION
  Report Type: 
  Country: None (occurrence: None)
  Receive Date: 20060606
  Receipt Date: 20060519
  Transmission Date: 20061013
  Serious: Yes (Death)
  Sender: FDA-Public Use
  Company Number: USA-2006-0024318

PATIENT
  Age: 26 Year
  Sex: Male
  Weight: 81.6 kg

DRUGS (2)
  1. MORPHINE SULFATE [Suspect]
     Dosage: INTRAVENOUS
     Route: 042
  2. METHADONE HCL [Suspect]

REACTIONS (3)
  - ACCIDENTAL DEATH [None]
  - POLYSUBSTANCE ABUSE [None]
  - PULMONARY OEDEMA [None]
